FAERS Safety Report 16563798 (Version 2)
Quarter: 2020Q2

REPORT INFORMATION
  Report Type: Spontaneous
  Country: US (occurrence: US)
  Receive Date: 20190712
  Receipt Date: 20200609
  Transmission Date: 20200713
  Serious: Yes (Hospitalization, Other)
  Sender: FDA-Public Use
  Company Number: US-SUN PHARMACEUTICAL INDUSTRIES LTD-2019R1-213476

PATIENT
  Age: 32 Year
  Sex: Female

DRUGS (2)
  1. DEXAMETHASONE. [Suspect]
     Active Substance: DEXAMETHASONE
     Indication: PRODUCT USED FOR UNKNOWN INDICATION
     Dosage: 8 MILLIGRAM, BID
     Route: 065
  2. ROVALPITUZUMAB TESIRINE [Suspect]
     Active Substance: ROVALPITUZUMAB TESIRINE
     Indication: PRODUCT USED FOR UNKNOWN INDICATION
     Dosage: UNK
     Route: 065

REACTIONS (3)
  - Catabolic state [Unknown]
  - Hyperammonaemic encephalopathy [Unknown]
  - Mental status changes [Recovering/Resolving]
